FAERS Safety Report 14807286 (Version 2)
Quarter: 2018Q3

REPORT INFORMATION
  Report Type: Spontaneous
  Country: HR (occurrence: HR)
  Receive Date: 20180425
  Receipt Date: 20180921
  Transmission Date: 20181010
  Serious: Yes (Hospitalization)
  Sender: FDA-Public Use
  Company Number: HR-GLAXOSMITHKLINE-HR2018067387

PATIENT
  Sex: Male

DRUGS (33)
  1. DIAZEPAM. [Suspect]
     Active Substance: DIAZEPAM
     Indication: PSYCHOTIC DISORDER
  2. LAMOTRIGINE. [Suspect]
     Active Substance: LAMOTRIGINE
     Indication: BIPOLAR DISORDER
  3. MIDAZOLAM [Suspect]
     Active Substance: MIDAZOLAM HYDROCHLORIDE
     Indication: PSYCHOTIC DISORDER
  4. DIAZEPAM. [Suspect]
     Active Substance: DIAZEPAM
     Indication: SOMATIC SYMPTOM DISORDER
     Dosage: DOSAGE FORM: UNSPECIFIED
     Route: 065
     Dates: start: 201110
  5. DIAZEPAM. [Suspect]
     Active Substance: DIAZEPAM
     Indication: HYPOMANIA
  6. CONCOR [Suspect]
     Active Substance: BISOPROLOL FUMARATE
     Indication: PSYCHOTIC DISORDER
  7. MIDAZOLAM [Suspect]
     Active Substance: MIDAZOLAM HYDROCHLORIDE
     Indication: SOMATIC SYMPTOM DISORDER
     Dosage: DOSAGE FORM: UNSPECIFIED
     Route: 065
  8. DIAZEPAM. [Suspect]
     Active Substance: DIAZEPAM
     Indication: ESSENTIAL HYPERTENSION
     Dosage: DOSAGE FORM: UNSPECIFIED
     Route: 065
     Dates: start: 200812
  9. DIAZEPAM. [Suspect]
     Active Substance: DIAZEPAM
     Indication: DEPRESSION
     Dosage: DOSAGE FORM: UNSPECIFIED
     Route: 065
     Dates: start: 2010
  10. LAMOTRIGINE. [Suspect]
     Active Substance: LAMOTRIGINE
     Indication: SCHIZOAFFECTIVE DISORDER
     Dosage: DOSAGE FORM: UNSPECIFIED
     Route: 065
     Dates: start: 2011
  11. LAMOTRIGINE. [Suspect]
     Active Substance: LAMOTRIGINE
     Indication: ESSENTIAL HYPERTENSION
  12. LAMOTRIGINE. [Suspect]
     Active Substance: LAMOTRIGINE
     Indication: ADJUSTMENT DISORDER
  13. LAMOTRIGINE. [Suspect]
     Active Substance: LAMOTRIGINE
     Indication: PSYCHOTIC DISORDER
  14. RISPERIDONE. [Suspect]
     Active Substance: RISPERIDONE
     Indication: SCHIZOAFFECTIVE DISORDER
     Dosage: 3 MG, UNK
     Route: 048
  15. RISPERIDONE. [Suspect]
     Active Substance: RISPERIDONE
     Indication: PSYCHOTIC DISORDER
  16. CONCOR [Suspect]
     Active Substance: BISOPROLOL FUMARATE
     Indication: SCHIZOAFFECTIVE DISORDER
  17. RISPOLEPT [Suspect]
     Active Substance: RISPERIDONE
     Indication: SCHIZOAFFECTIVE DISORDER
     Dosage: 50 MG, UNK
     Route: 065
     Dates: start: 201304, end: 201505
  18. DIAZEPAM. [Suspect]
     Active Substance: DIAZEPAM
     Indication: SCHIZOAFFECTIVE DISORDER
  19. DIAZEPAM. [Suspect]
     Active Substance: DIAZEPAM
     Indication: BIPOLAR DISORDER
  20. LAMOTRIGINE. [Suspect]
     Active Substance: LAMOTRIGINE
     Indication: HYPOMANIA
  21. RISPERIDONE. [Suspect]
     Active Substance: RISPERIDONE
     Indication: SOMATIC SYMPTOM DISORDER
     Dosage: DOSAGE FORM: UNSPECIFIED
     Route: 048
  22. LAMOTRIGINE. [Suspect]
     Active Substance: LAMOTRIGINE
     Indication: DEPRESSION
     Dosage: DOSAGE FORM: UNSPECIFIED
     Route: 065
     Dates: start: 200812
  23. CLOZAPINE. [Suspect]
     Active Substance: CLOZAPINE
     Indication: SCHIZOAFFECTIVE DISORDER
     Dosage: DOSAGE FORM: UNSPECIFIED
     Route: 065
  24. BYOL [Suspect]
     Active Substance: BISOPROLOL
     Indication: SCHIZOAFFECTIVE DISORDER
     Dosage: DOSAGE FORM: UNSPECIFIED
     Route: 065
  25. RAMIPRIL. [Suspect]
     Active Substance: RAMIPRIL
     Indication: SCHIZOAFFECTIVE DISORDER
     Dosage: DOSAGE FORM: UNSPECIFIED
     Route: 048
  26. RISPERIDONE. [Suspect]
     Active Substance: RISPERIDONE
     Indication: ESSENTIAL HYPERTENSION
  27. MIDAZOLAM [Suspect]
     Active Substance: MIDAZOLAM HYDROCHLORIDE
     Indication: SCHIZOAFFECTIVE DISORDER
  28. MIDAZOLAM [Suspect]
     Active Substance: MIDAZOLAM HYDROCHLORIDE
     Indication: ESSENTIAL HYPERTENSION
  29. CONCOR [Suspect]
     Active Substance: BISOPROLOL FUMARATE
     Indication: ESSENTIAL HYPERTENSION
  30. RISPOLEPT [Suspect]
     Active Substance: RISPERIDONE
     Dosage: 37.5 MG, UNK
     Route: 065
     Dates: start: 201110, end: 201304
  31. DIAZEPAM. [Suspect]
     Active Substance: DIAZEPAM
     Indication: ADJUSTMENT DISORDER
  32. LAMOTRIGINE. [Suspect]
     Active Substance: LAMOTRIGINE
     Indication: SOMATIC SYMPTOM DISORDER
     Dosage: DOSAGE FORM: UNSPECIFIED
     Route: 065
     Dates: start: 2010
  33. CONCOR [Suspect]
     Active Substance: BISOPROLOL FUMARATE
     Indication: SOMATIC SYMPTOM DISORDER
     Dosage: UNK
     Route: 065

REACTIONS (2)
  - Depression [Recovered/Resolved]
  - Illusion [Unknown]

NARRATIVE: CASE EVENT DATE: 201304
